FAERS Safety Report 24303303 (Version 1)
Quarter: 2024Q3

REPORT INFORMATION
  Report Type: Spontaneous
  Country: US (occurrence: None)
  Receive Date: 20240828
  Receipt Date: 20240828
  Transmission Date: 20241017
  Serious: No
  Sender: Public
  Company Number: None

PATIENT
  Age: 67 Year
  Sex: Male
  Weight: 87.75 kg

DRUGS (1)
  1. PROSCAR [Suspect]
     Active Substance: FINASTERIDE

REACTIONS (3)
  - Drug monitoring procedure incorrectly performed [None]
  - Transfusion with incompatible blood [None]
  - Recalled product administered [None]

NARRATIVE: CASE EVENT DATE: 20240801
